FAERS Safety Report 8136651-0 (Version None)
Quarter: 2012Q1

REPORT INFORMATION
  Report Type: 
  Country: None (occurrence: None)
  Receive Date: 20120214
  Receipt Date: 20120206
  Transmission Date: 20120608
  Serious: Yes (Hospitalization)
  Sender: FDA-Public Use
  Company Number: BE-B.I. PHARMACEUTICALS,INC./RIDGEFIELD-2012-BL-00083BL

PATIENT
  Sex: Female

DRUGS (9)
  1. ELTHYROXINE [Concomitant]
     Dosage: 125 MCG
  2. PRADAXA [Suspect]
     Indication: ATRIAL FIBRILLATION
     Dosage: 220 MG
     Route: 048
     Dates: start: 20111201, end: 20111229
  3. ATACAND [Concomitant]
     Dosage: 8 MG
  4. CRESTOR [Concomitant]
     Dosage: 10 MG
  5. CORDARONE [Concomitant]
     Dosage: 200 MG
  6. LAXOBERON [Concomitant]
     Dosage: 20 ANZ
  7. DITROPAN [Concomitant]
     Dosage: 15 MG
  8. NORBITEN [Concomitant]
     Dosage: 5 MG
  9. POLYETHYLENE GLYCOL [Concomitant]

REACTIONS (1)
  - THROMBOSIS IN DEVICE [None]
